FAERS Safety Report 5771865-6 (Version None)
Quarter: 2008Q2

REPORT INFORMATION
  Report Type: 
  Country: None (occurrence: None)
  Receive Date: 20080612
  Receipt Date: 20080612
  Transmission Date: 20081010
  Serious: Yes (Hospitalization)
  Sender: FDA-Public Use
  Company Number: None

PATIENT
  Age: 59 Year
  Sex: Male
  Weight: 89 kg

DRUGS (1)
  1. HYDROCHLOROTHIAZIDE [Suspect]
     Dosage: 1 TAB EVERY DAY PO
     Route: 048
     Dates: start: 20070202, end: 20080519

REACTIONS (1)
  - PANCREATITIS [None]
